FAERS Safety Report 25976874 (Version 1)
Quarter: 2025Q4

REPORT INFORMATION
  Report Type: Spontaneous
  Country: CN (occurrence: CN)
  Receive Date: 20251029
  Receipt Date: 20251029
  Transmission Date: 20260117
  Serious: Yes (Other)
  Sender: ABBVIE
  Company Number: CN-ABBVIE-6520367

PATIENT
  Age: 68 Year
  Sex: Male
  Weight: 59 kg

DRUGS (4)
  1. VENETOCLAX [Suspect]
     Active Substance: VENETOCLAX
     Indication: Targeted cancer therapy
     Dosage: 100 MILLIGRAM
     Route: 048
     Dates: start: 20250918, end: 20250918
  2. VENETOCLAX [Suspect]
     Active Substance: VENETOCLAX
     Indication: Targeted cancer therapy
     Dosage: 400 MILLIGRAM
     Route: 048
     Dates: start: 20250920, end: 20251016
  3. VENETOCLAX [Suspect]
     Active Substance: VENETOCLAX
     Indication: Targeted cancer therapy
     Dosage: 200 MILLIGRAM
     Route: 048
     Dates: start: 20250919, end: 20250919
  4. AZACITIDINE [Suspect]
     Active Substance: AZACITIDINE
     Indication: Neoplasm
     Dosage: 100 MILLIGRAM
     Route: 058
     Dates: start: 20250918, end: 20250924

REACTIONS (3)
  - Myelosuppression [Recovering/Resolving]
  - Granulocytopenia [Recovering/Resolving]
  - Pyrexia [Recovering/Resolving]

NARRATIVE: CASE EVENT DATE: 20250923
